FAERS Safety Report 16787549 (Version 1)
Quarter: 2019Q3

REPORT INFORMATION
  Report Type: Spontaneous
  Country: US (occurrence: US)
  Receive Date: 20190718
  Receipt Date: 20190718
  Transmission Date: 20191005
  Serious: No
  Sender: FDA-Public Use
  Company Number: None

PATIENT
  Age: 25 Year
  Sex: Female
  Weight: 56.6 kg

DRUGS (1)
  1. GENERIC ORTHO-TRI-CYCLEN LO [Suspect]
     Active Substance: ETHINYL ESTRADIOL\NORGESTIMATE
     Indication: CONTRACEPTION
     Dosage: ?          OTHER DOSE:1 TAB;?
     Route: 048
     Dates: start: 2017

REACTIONS (3)
  - Anxiety [None]
  - Depressed level of consciousness [None]
  - Palpitations [None]

NARRATIVE: CASE EVENT DATE: 20170102
